FAERS Safety Report 13506934 (Version 2)
Quarter: 2017Q2

REPORT INFORMATION
  Report Type: Spontaneous
  Country: US (occurrence: US)
  Receive Date: 20170503
  Receipt Date: 20170602
  Transmission Date: 20170830
  Serious: Yes (Death)
  Sender: FDA-Public Use
  Company Number: US-ROCHE-1930122

PATIENT
  Age: 77 Year
  Sex: Male
  Weight: 69.46 kg

DRUGS (1)
  1. ESBRIET [Suspect]
     Active Substance: PIRFENIDONE
     Indication: IDIOPATHIC PULMONARY FIBROSIS
     Route: 048
     Dates: start: 20161115

REACTIONS (2)
  - Cardiogenic shock [Fatal]
  - Renal failure [Fatal]

NARRATIVE: CASE EVENT DATE: 20170429
